FAERS Safety Report 8592009 (Version 8)
Quarter: 2014Q2

REPORT INFORMATION
  Report Type: Report from Study
  Country: JP (occurrence: JP)
  Receive Date: 20120601
  Receipt Date: 20140523
  Transmission Date: 20141212
  Serious: Yes (Hospitalization)
  Sender: FDA-Public Use
  Company Number: JP-VERTEX PHARMACEUTICALS INC.-AE-2012-007784

PATIENT
  Age: 22 Year
  Sex: Female

DRUGS (8)
  1. VX-950 (TELAPREVIR) [Suspect]
     Indication: CHRONIC HEPATITIS C
     Dosage: 1500 MG, QD
     Route: 048
     Dates: start: 20120403, end: 20120626
  2. RIBAVIRIN [Suspect]
     Indication: CHRONIC HEPATITIS C
     Dosage: 600 MG, QD
     Route: 048
     Dates: start: 20120403, end: 20120702
  3. RIBAVIRIN [Suspect]
     Dosage: 400 MG, QD
     Route: 048
     Dates: start: 20120703, end: 20120820
  4. RIBAVIRIN [Suspect]
     Dosage: 600 MG, QD
     Route: 048
     Dates: start: 20120821, end: 20120918
  5. PEGINTERFERON ALFA-2B [Suspect]
     Indication: CHRONIC HEPATITIS C
     Dosage: 80 ?G, QW
     Route: 058
     Dates: start: 20120403, end: 20120626
  6. PEGINTERFERON ALFA-2B [Suspect]
     Dosage: 60 ?G, QW
     Route: 058
     Dates: start: 20120703, end: 20120918
  7. ZANTAC [Concomitant]
     Indication: PRODUCT USED FOR UNKNOWN INDICATION
     Dosage: 300 MG, QD
     Route: 048
  8. ZANTAC [Concomitant]
     Dosage: 300 MG, QD
     Route: 048
     Dates: start: 20120620, end: 20120918

REACTIONS (1)
  - Drug eruption [Recovering/Resolving]
